FAERS Safety Report 5472292-1 (Version None)
Quarter: 2007Q3

REPORT INFORMATION
  Report Type: 
  Country: None (occurrence: None)
  Receive Date: 20070925
  Receipt Date: 20070918
  Transmission Date: 20080115
  Serious: Yes (Other)
  Sender: FDA-Public Use
  Company Number: 2007SP019090

PATIENT
  Sex: Female

DRUGS (1)
  1. CORICIDIN [Suspect]
     Dosage: PO
     Route: 048

REACTIONS (2)
  - DRUG EFFECT PROLONGED [None]
  - INTENTIONAL OVERDOSE [None]
